FAERS Safety Report 10012130 (Version 1)
Quarter: 2014Q1

REPORT INFORMATION
  Report Type: Spontaneous
  Country: US (occurrence: US)
  Receive Date: 20140314
  Receipt Date: 20140314
  Transmission Date: 20141002
  Serious: Yes (Other)
  Sender: FDA-Public Use
  Company Number: US-TEVA-468682USA

PATIENT
  Sex: Female

DRUGS (1)
  1. METFORMIN [Suspect]

REACTIONS (2)
  - Coeliac disease [Unknown]
  - Urticaria [Unknown]
